FAERS Safety Report 8395920-X (Version None)
Quarter: 2012Q2

REPORT INFORMATION
  Report Type: 
  Country: None (occurrence: None)
  Receive Date: 20120530
  Receipt Date: 20120524
  Transmission Date: 20120825
  Serious: Yes (Life-Threatening, Hospitalization, Other)
  Sender: FDA-Public Use
  Company Number: US-ELI_LILLY_AND_COMPANY-US201205009725

PATIENT
  Age: 12 Year
  Sex: Female

DRUGS (2)
  1. HUMATROPE [Suspect]
     Indication: GROWTH HORMONE DEFICIENCY
     Dosage: 0.6 MG, QD
     Dates: start: 20070101
  2. HUMATROPE [Suspect]
     Dosage: 0.6 MG, QD
     Dates: start: 20100101

REACTIONS (5)
  - COUGH DECREASED [None]
  - HOLOPROSENCEPHALY [None]
  - MENINGITIS [None]
  - HOSPITALISATION [None]
  - COUGH [None]
